FAERS Safety Report 10088302 (Version 1)
Quarter: 2014Q2

REPORT INFORMATION
  Report Type: Other
  Country: US (occurrence: US)
  Receive Date: 20140421
  Receipt Date: 20140421
  Transmission Date: 20141212
  Serious: Yes (Hospitalization, Other)
  Sender: FDA-Public Use
  Company Number: US-BRISTOL-MYERS SQUIBB COMPANY-20650503

PATIENT
  Age: 62 Year
  Sex: Male

DRUGS (1)
  1. IPILIMUMAB [Suspect]
     Indication: METASTATIC MALIGNANT MELANOMA
     Dosage: ON 19-MAR-2013. LAST DOSE ON 8-APR-2013,PRIOR TO EVENT
     Dates: start: 20130226

REACTIONS (7)
  - Myelitis transverse [Recovering/Resolving]
  - Renal failure acute [Recovering/Resolving]
  - Colitis [Recovering/Resolving]
  - Uveitis [Recovering/Resolving]
  - Dermatitis [Recovering/Resolving]
  - Urogenital disorder [Recovering/Resolving]
  - Asthenia [Recovering/Resolving]
